FAERS Safety Report 15012534 (Version 3)
Quarter: 2018Q3

REPORT INFORMATION
  Report Type: Spontaneous
  Country: DE (occurrence: DE)
  Receive Date: 20180614
  Receipt Date: 20180801
  Transmission Date: 20181010
  Serious: Yes (Death)
  Sender: FDA-Public Use
  Company Number: DE-CHIESI USA INC.-DE-2018CHI000149

PATIENT
  Sex: Male
  Weight: 1.25 kg

DRUGS (1)
  1. CUROSURF [Suspect]
     Active Substance: PORACTANT ALFA
     Indication: NEONATAL RESPIRATORY DISTRESS SYNDROME
     Dosage: UNK, BID
     Route: 007

REACTIONS (1)
  - Pulmonary haemorrhage [Fatal]
